FAERS Safety Report 4562249-7 (Version None)
Quarter: 2005Q1

REPORT INFORMATION
  Report Type: 
  Country: None (occurrence: None)
  Receive Date: 20050121
  Receipt Date: 20050111
  Transmission Date: 20050727
  Serious: Yes (Other)
  Sender: FDA-Public Use
  Company Number: 2005010096

PATIENT
  Sex: Female
  Weight: 68.0396 kg

DRUGS (2)
  1. LIPITOR [Suspect]
     Indication: BLOOD CHOLESTEROL
     Dosage: (10 MG)
  2. MULTIVITAMIN [Concomitant]

REACTIONS (2)
  - ARTHRITIS [None]
  - BLOOD GLUCOSE INCREASED [None]
